FAERS Safety Report 14381834 (Version 1)
Quarter: 2018Q1

REPORT INFORMATION
  Report Type: Report from Study
  Country: DE (occurrence: DE)
  Receive Date: 20180112
  Receipt Date: 20180112
  Transmission Date: 20180509
  Serious: Yes (Death, Hospitalization)
  Sender: FDA-Public Use
  Company Number: DE-PFIZER INC-2018015450

PATIENT
  Sex: Female
  Weight: 69.9 kg

DRUGS (2)
  1. EXEMESTANE. [Suspect]
     Active Substance: EXEMESTANE
     Dosage: 25 MG, QD
     Route: 048
     Dates: start: 20160604, end: 20160823
  2. AFINITOR [Suspect]
     Active Substance: EVEROLIMUS
     Indication: BREAST CANCER METASTATIC
     Dosage: 5 MG, QD
     Route: 048
     Dates: start: 20160604, end: 20160823

REACTIONS (17)
  - Neoplasm progression [Fatal]
  - Pallor [Fatal]
  - Tongue coated [Unknown]
  - Blood urea increased [Unknown]
  - Rales [Fatal]
  - Troponin increased [Unknown]
  - Tachycardia [Fatal]
  - Disorientation [Fatal]
  - Blood creatinine increased [Unknown]
  - Protein total decreased [Unknown]
  - Mean cell haemoglobin concentration decreased [Unknown]
  - Heart sounds abnormal [Unknown]
  - C-reactive protein increased [Unknown]
  - Mydriasis [Unknown]
  - Dyspnoea [Fatal]
  - Somnolence [Fatal]
  - Glomerular filtration rate decreased [Unknown]

NARRATIVE: CASE EVENT DATE: 20160823
